FAERS Safety Report 25539124 (Version 1)
Quarter: 2025Q3

REPORT INFORMATION
  Report Type: Spontaneous
  Country: US (occurrence: None)
  Receive Date: 20250709
  Receipt Date: 20250709
  Transmission Date: 20251021
  Serious: No
  Sender: FDA-CTU
  Company Number: None

PATIENT
  Sex: Female

DRUGS (10)
  1. TREMFYA [Suspect]
     Active Substance: GUSELKUMAB
     Indication: Crohn^s disease
     Dates: start: 20250703
  2. GABAPENTIN [Concomitant]
     Active Substance: GABAPENTIN
  3. azstarys 39.2-7.8 mg [Concomitant]
  4. BUPROPION [Concomitant]
     Active Substance: BUPROPION
  5. LEVAQUIN [Concomitant]
     Active Substance: LEVOFLOXACIN
     Dates: end: 20250703
  6. zofran 4 mg [Concomitant]
  7. vitamin d3 5000 unit [Concomitant]
  8. TRAMADOL [Concomitant]
     Active Substance: TRAMADOL
  9. PREDNISONE [Concomitant]
     Active Substance: PREDNISONE
     Dates: end: 20250703
  10. METRONIDAZOLE [Concomitant]
     Active Substance: METRONIDAZOLE

REACTIONS (6)
  - Drug hypersensitivity [None]
  - Peripheral swelling [None]
  - Peripheral swelling [None]
  - Joint swelling [None]
  - Peripheral swelling [None]
  - Pain [None]
